FAERS Safety Report 12432763 (Version 2)
Quarter: 2016Q2

REPORT INFORMATION
  Report Type: Spontaneous
  Country: FR (occurrence: FR)
  Receive Date: 20160603
  Receipt Date: 20160620
  Transmission Date: 20160815
  Serious: Yes (Hospitalization)
  Sender: FDA-Public Use
  Company Number: FR-NOVOPROD-494141

PATIENT
  Age: 48 Year
  Sex: Female

DRUGS (8)
  1. VICTOZA [Suspect]
     Active Substance: LIRAGLUTIDE
     Dosage: 1.2 MG, QD
     Route: 058
     Dates: start: 20160513, end: 20160514
  2. FERRIPROX [Concomitant]
     Active Substance: DEFERIPRONE
     Dosage: UNK
  3. VENTOLINE                          /00139501/ [Concomitant]
     Active Substance: ALBUTEROL
     Dosage: UNK
  4. ACUPAN [Suspect]
     Active Substance: NEFOPAM HYDROCHLORIDE
     Indication: ARTHRALGIA
     Dosage: 20 MG, BID
     Route: 030
     Dates: start: 20160507, end: 20160514
  5. TAREG [Concomitant]
     Active Substance: VALSARTAN
     Dosage: UNK
  6. LERCAN [Concomitant]
     Active Substance: LERCANIDIPINE
     Dosage: UNK
  7. VICTOZA [Suspect]
     Active Substance: LIRAGLUTIDE
     Indication: TYPE 2 DIABETES MELLITUS
     Dosage: 0.6 MG, QD
     Route: 058
     Dates: start: 20160505, end: 20160512
  8. METFORMINE [Concomitant]
     Active Substance: METFORMIN HYDROCHLORIDE
     Dosage: UNK

REACTIONS (2)
  - Malaise [Recovered/Resolved]
  - Vomiting [Recovered/Resolved]

NARRATIVE: CASE EVENT DATE: 20160511
